FAERS Safety Report 8909835 (Version 1)
Quarter: 2012Q4

REPORT INFORMATION
  Report Type: 
  Country: JP (occurrence: JP)
  Receive Date: 20121115
  Receipt Date: 20121115
  Transmission Date: 20130627
  Serious: Yes (Other)
  Sender: FDA-Public Use
  Company Number: JP-PFIZER INC-2012285720

PATIENT
  Sex: Male

DRUGS (1)
  1. LYRICA [Suspect]
     Dosage: 75 mg, 2x/day (in the morning and evening)
     Route: 048

REACTIONS (2)
  - Cardiac failure [Unknown]
  - Brain natriuretic peptide increased [Unknown]
